FAERS Safety Report 6718140-0 (Version None)
Quarter: 2010Q2

REPORT INFORMATION
  Report Type: 
  Country: None (occurrence: None)
  Receive Date: 20100510
  Receipt Date: 20100430
  Transmission Date: 20101027
  Serious: Yes (Life-Threatening, Hospitalization)
  Sender: FDA-Public Use
  Company Number: B0650610A

PATIENT
  Sex: Male

DRUGS (1)
  1. ZELITREX [Suspect]
     Dosage: 500MG SIX TIMES PER DAY
     Route: 048
     Dates: start: 20100311, end: 20100313

REACTIONS (6)
  - ANTIVIRAL DRUG LEVEL ABOVE THERAPEUTIC [None]
  - CONFUSIONAL STATE [None]
  - DISORIENTATION [None]
  - DRUG LEVEL INCREASED [None]
  - OVERDOSE [None]
  - SOMNOLENCE [None]
